FAERS Safety Report 8305152-9 (Version None)
Quarter: 2012Q2

REPORT INFORMATION
  Report Type: 
  Country: None (occurrence: None)
  Receive Date: 20120423
  Receipt Date: 20120419
  Transmission Date: 20120825
  Serious: Yes (Life-Threatening, Hospitalization, Other)
  Sender: FDA-Public Use
  Company Number: US-ASTRAZENECA-2011SE56915

PATIENT
  Age: 42 Year
  Sex: Male
  Weight: 68 kg

DRUGS (6)
  1. SEROQUEL XR [Suspect]
     Indication: SCHIZOPHRENIA
     Route: 048
  2. WELLBUTRIN [Concomitant]
  3. SEROQUEL XR [Suspect]
     Indication: SOCIAL PHOBIA
     Route: 048
  4. SEROQUEL XR [Suspect]
     Indication: PARANOIA
     Route: 048
  5. PROZAC [Concomitant]
  6. SEROQUEL XR [Suspect]
     Indication: MAJOR DEPRESSION
     Route: 048

REACTIONS (8)
  - FEELING ABNORMAL [None]
  - DEPRESSED MOOD [None]
  - INTENTIONAL DRUG MISUSE [None]
  - INSOMNIA [None]
  - PARANOIA [None]
  - SUICIDE ATTEMPT [None]
  - ANXIETY [None]
  - COMA [None]
